FAERS Safety Report 13955276 (Version 1)
Quarter: 2017Q3

REPORT INFORMATION
  Report Type: Spontaneous
  Country: IT (occurrence: IT)
  Receive Date: 20170911
  Receipt Date: 20170911
  Transmission Date: 20171128
  Serious: Yes (Hospitalization)
  Sender: FDA-Public Use
  Company Number: IT-JNJFOC-20170907035

PATIENT
  Age: 78 Year
  Sex: Female

DRUGS (5)
  1. ZOCOR [Concomitant]
     Active Substance: SIMVASTATIN
     Route: 048
  2. XARELTO [Suspect]
     Active Substance: RIVAROXABAN
     Indication: ATRIAL FIBRILLATION
     Route: 048
     Dates: start: 20170101, end: 20170729
  3. TRIATEC [Concomitant]
     Active Substance: RAMIPRIL
     Route: 048
  4. LANSOX [Concomitant]
     Active Substance: LANSOPRAZOLE
     Route: 048
  5. BISOPROLOL [Concomitant]
     Active Substance: BISOPROLOL
     Route: 048

REACTIONS (3)
  - Headache [Unknown]
  - Retching [Unknown]
  - Subdural haematoma [Unknown]

NARRATIVE: CASE EVENT DATE: 20170729
